FAERS Safety Report 21749238 (Version 1)
Quarter: 2022Q4

REPORT INFORMATION
  Report Type: Spontaneous
  Country: US (occurrence: US)
  Receive Date: 20221219
  Receipt Date: 20221219
  Transmission Date: 20230112
  Serious: No
  Sender: FDA-Public Use
  Company Number: US-Taiho Oncology Inc-EU-2019-02102

PATIENT
  Age: 53 Year
  Sex: Female
  Weight: 55.79 kg

DRUGS (13)
  1. LONSURF [Suspect]
     Active Substance: TIPIRACIL HYDROCHLORIDE\TRIFLURIDINE
     Indication: Colon cancer
     Dosage: CURRENT CYCLE 1. LONSURF STRENGTH 20 AND 15 MG
     Route: 048
     Dates: start: 20190612, end: 20190806
  2. ATROVENT HFA [Concomitant]
     Active Substance: IPRATROPIUM BROMIDE
     Dosage: NI
  3. BENZONATATE [Concomitant]
     Active Substance: BENZONATATE
     Dosage: NI
  4. CARAFATE [Concomitant]
     Active Substance: SUCRALFATE
     Dosage: NI
  5. ELIQUIS [Concomitant]
     Active Substance: APIXABAN
     Dosage: NI
  6. LEVOFLOXACIN [Concomitant]
     Active Substance: LEVOFLOXACIN
     Dosage: NI
  7. LIDOCAINE\PRILOCAINE [Concomitant]
     Active Substance: LIDOCAINE\PRILOCAINE
     Dosage: NI
  8. LORAZEPAM [Concomitant]
     Active Substance: LORAZEPAM
     Dosage: NI
  9. MORPHINE SULFATE [Concomitant]
     Active Substance: MORPHINE SULFATE
     Dosage: NI
  10. MS CONTIN [Concomitant]
     Active Substance: MORPHINE SULFATE
     Dosage: NI
  11. OMEPRAZOLE [Concomitant]
     Active Substance: OMEPRAZOLE
     Dosage: NI
  12. ONDANSETRON [Concomitant]
     Active Substance: ONDANSETRON
     Dosage: NI
  13. AMPHETAMINE\DEXTROAMPHETAMINE [Concomitant]
     Active Substance: AMPHETAMINE\DEXTROAMPHETAMINE

REACTIONS (4)
  - Cognitive disorder [Unknown]
  - Incorrect dose administered [Unknown]
  - Product label confusion [Unknown]
  - Therapy non-responder [Unknown]

NARRATIVE: CASE EVENT DATE: 20190101
